FAERS Safety Report 6842214-7 (Version None)
Quarter: 2010Q3

REPORT INFORMATION
  Report Type: 
  Country: None (occurrence: None)
  Receive Date: 20100714
  Receipt Date: 20070831
  Transmission Date: 20110219
  Serious: No
  Sender: FDA-Public Use
  Company Number: US-PFIZER INC-2007060859

PATIENT
  Sex: Female
  Weight: 81.8 kg

DRUGS (5)
  1. CHANTIX [Suspect]
     Indication: SMOKING CESSATION THERAPY
     Dates: start: 20070401
  2. CYMBALTA [Suspect]
  3. PREMARIN [Concomitant]
  4. FLEXERIL [Concomitant]
  5. SERTRALINE HCL [Concomitant]

REACTIONS (6)
  - ABDOMINAL DISTENSION [None]
  - ADNEXA UTERI PAIN [None]
  - BLADDER PAIN [None]
  - CONSTIPATION [None]
  - FLATULENCE [None]
  - GASTROINTESTINAL PAIN [None]
